FAERS Safety Report 5495766-6 (Version None)
Quarter: 2007Q4

REPORT INFORMATION
  Report Type: 
  Country: None (occurrence: None)
  Receive Date: 20071025
  Receipt Date: 20061212
  Transmission Date: 20080405
  Serious: No
  Sender: FDA-Public Use
  Company Number: A0623918A

PATIENT
  Age: 54 Year
  Sex: Female

DRUGS (13)
  1. ADVAIR DISKUS 100/50 [Suspect]
     Indication: DRUG USE FOR UNKNOWN INDICATION
     Dosage: 1PUFF TWICE PER DAY
     Route: 055
     Dates: start: 20060804
  2. ALBUTEROL [Concomitant]
  3. LYRICA [Concomitant]
  4. LIPITOR [Concomitant]
  5. AMBIEN [Concomitant]
  6. GLYBURIDE [Concomitant]
  7. MECLIZINE [Concomitant]
  8. AVANDIA [Concomitant]
  9. ENALAPRIL MALEATE [Concomitant]
  10. HYDROXYZINE HCL [Concomitant]
  11. CELEBREX [Concomitant]
  12. PREVACID [Concomitant]
  13. SINGULAIR [Concomitant]

REACTIONS (2)
  - DRUG INEFFECTIVE [None]
  - PHARMACEUTICAL PRODUCT COMPLAINT [None]
